FAERS Safety Report 9469887 (Version 2)
Quarter: 2014Q1

REPORT INFORMATION
  Report Type: Spontaneous
  Country: IT (occurrence: IT)
  Receive Date: 20130822
  Receipt Date: 20140328
  Transmission Date: 20141002
  Serious: Yes (Hospitalization)
  Sender: FDA-Public Use
  Company Number: IT-ROCHE-1264076

PATIENT
  Age: 62 Year
  Sex: Male
  Weight: 75 kg

DRUGS (3)
  1. XELODA [Suspect]
     Indication: GASTRIC CANCER
     Route: 048
     Dates: start: 20120924, end: 20120929
  2. EPIRUBICIN [Suspect]
     Indication: GASTRIC CANCER
     Route: 042
     Dates: start: 20130924, end: 20130929
  3. CISPLATIN [Suspect]
     Indication: GASTRIC CANCER
     Route: 042
     Dates: start: 20120924, end: 20120929

REACTIONS (2)
  - Weight decreased [Unknown]
  - Gastrointestinal toxicity [Unknown]
